FAERS Safety Report 11310563 (Version 1)
Quarter: 2015Q3

REPORT INFORMATION
  Report Type: Spontaneous
  Country: US (occurrence: US)
  Receive Date: 20150724
  Receipt Date: 20150724
  Transmission Date: 20151125
  Serious: No
  Sender: FDA-Public Use
  Company Number: US-GALENA BIOPHARMA-1040720

PATIENT
  Age: 63 Year
  Sex: Female
  Weight: 72.27 kg

DRUGS (7)
  1. ZANAFLEX [Concomitant]
     Active Substance: TIZANIDINE HYDROCHLORIDE
  2. LISINOPRIL. [Concomitant]
     Active Substance: LISINOPRIL
  3. ABSTRAL [Suspect]
     Active Substance: FENTANYL CITRATE
     Indication: BREAKTHROUGH PAIN
     Route: 060
     Dates: end: 20140619
  4. NEURONTIN [Concomitant]
     Active Substance: GABAPENTIN
  5. XANAX [Concomitant]
     Active Substance: ALPRAZOLAM
  6. ALBUTEROL. [Concomitant]
     Active Substance: ALBUTEROL
  7. VERAPAMIL [Concomitant]
     Active Substance: VERAPAMIL HYDROCHLORIDE

REACTIONS (1)
  - Headache [Recovered/Resolved]
